FAERS Safety Report 6689388-9 (Version None)
Quarter: 2010Q2

REPORT INFORMATION
  Report Type: 
  Country: None (occurrence: None)
  Receive Date: 20100419
  Receipt Date: 20100419
  Transmission Date: 20101027
  Serious: Yes (Hospitalization)
  Sender: FDA-Public Use
  Company Number: None

PATIENT
  Age: 71 Year
  Sex: Male
  Weight: 86.5 kg

DRUGS (7)
  1. RAPAFLO [Suspect]
     Indication: BENIGN PROSTATIC HYPERPLASIA
     Dosage: 8MG ONCE DAILY IN AM OTHER
     Route: 050
     Dates: start: 20100327, end: 20100329
  2. LOSARTAN POTASSIUM [Concomitant]
  3. DILTIAZEM HCL [Concomitant]
  4. FAMOTIDINE [Concomitant]
  5. TYLENOL-500 [Concomitant]
  6. BACLOFEN [Concomitant]
  7. OMEPRAZOLE [Concomitant]

REACTIONS (1)
  - HEPATITIS ACUTE [None]
